FAERS Safety Report 9146127 (Version 4)
Quarter: 2013Q2

REPORT INFORMATION
  Report Type: Report from Study
  Country: US (occurrence: US)
  Receive Date: 20130307
  Receipt Date: 20130619
  Transmission Date: 20140414
  Serious: Yes (Other)
  Sender: FDA-Public Use
  Company Number: US-VERTEX PHARMACEUTICALS INC.-2013-003037

PATIENT
  Sex: Female
  Weight: 101 kg

DRUGS (14)
  1. VX-950 (TELAPREVIR) [Suspect]
     Indication: HEPATITIS C
     Dosage: 375 MG, TID
     Route: 048
     Dates: start: 20130201, end: 20130409
  2. RIBAPAK [Suspect]
     Indication: HEPATITIS C
     Dosage: 600 MG, BID
     Route: 048
     Dates: start: 20130201, end: 20130409
  3. PEGASYS [Suspect]
     Indication: HEPATITIS C
     Dosage: 180 ?G, QW
     Route: 058
     Dates: start: 20130201, end: 20130409
  4. FERROUS SULPHATE [Concomitant]
     Dosage: 325 MG, QD
     Route: 048
  5. FISH OIL [Concomitant]
     Dosage: 1000 MG, UNK
  6. LEVOTHYROXINE [Concomitant]
     Dosage: 50 ?G, QD
     Route: 048
  7. LEXAPRO [Concomitant]
     Dosage: 20 MG, QD
  8. MOTRIN [Concomitant]
  9. NORVASC [Concomitant]
     Dosage: 5 MG, QD
     Route: 048
  10. SEROQUEL [Concomitant]
     Dosage: 100 MG, QD
     Route: 048
  11. TRILEPTAL [Concomitant]
     Dosage: 600 MG, QD
     Route: 048
  12. VITAMIN B12 [Concomitant]
     Dosage: 1000 MCG/ML 1 INJECTION WEEKLY FOR 1 MONTH AND THEN MONTHLY
  13. NEURONTIN [Concomitant]
     Dosage: 1600 MG, QD
     Route: 048
  14. PROPOFOL [Concomitant]
     Indication: OESOPHAGOGASTRODUODENOSCOPY

REACTIONS (22)
  - Suicidal ideation [Unknown]
  - Dyspnoea [Unknown]
  - Depression [Unknown]
  - Dizziness [Unknown]
  - Local swelling [Not Recovered/Not Resolved]
  - Anxiety [Unknown]
  - Panic attack [Unknown]
  - Dysphagia [Recovered/Resolved]
  - Oropharyngeal pain [Recovered/Resolved]
  - Decreased appetite [Unknown]
  - Weight decreased [Unknown]
  - Faeces discoloured [Unknown]
  - Tearfulness [Unknown]
  - Thirst [Unknown]
  - Fatigue [Unknown]
  - Oral candidiasis [Not Recovered/Not Resolved]
  - Oesophageal candidiasis [Unknown]
  - Rash [Unknown]
  - Pruritus [Unknown]
  - Nausea [Unknown]
  - Vomiting [Unknown]
  - Diarrhoea [Unknown]
